FAERS Safety Report 6020169-5 (Version None)
Quarter: 2008Q4

REPORT INFORMATION
  Report Type: 
  Country: None (occurrence: None)
  Receive Date: 20081226
  Receipt Date: 20081217
  Transmission Date: 20090506
  Serious: Yes (Other)
  Sender: FDA-Public Use
  Company Number: US-BAYER-200814908BCC

PATIENT
  Age: 6 Year
  Sex: Female
  Weight: 71 kg

DRUGS (1)
  1. ASPIRIN [Suspect]
     Indication: DRUG USE FOR UNKNOWN INDICATION
     Dosage: UNIT DOSE: 81 MG
     Route: 048
     Dates: start: 19790101

REACTIONS (5)
  - DRUG HYPERSENSITIVITY [None]
  - DYSPNOEA [None]
  - OEDEMA PERIPHERAL [None]
  - SWELLING FACE [None]
  - THROAT TIGHTNESS [None]
